FAERS Safety Report 6398732-1 (Version None)
Quarter: 2009Q4

REPORT INFORMATION
  Report Type: 
  Country: None (occurrence: None)
  Receive Date: 20091013
  Receipt Date: 20090929
  Transmission Date: 20100525
  Serious: Yes (Hospitalization)
  Sender: FDA-Public Use
  Company Number: PHHY2009ZA41901

PATIENT
  Sex: Female

DRUGS (4)
  1. RITALIN [Suspect]
     Dosage: UNK
  2. DORMICUM [Concomitant]
     Dosage: UNK
  3. MYPAID [Concomitant]
     Dosage: UNK
  4. LAMICTIN [Concomitant]
     Dosage: UNK

REACTIONS (6)
  - BODY TEMPERATURE DECREASED [None]
  - COMA [None]
  - GENERAL PHYSICAL CONDITION ABNORMAL [None]
  - HEPATIC ENZYME INCREASED [None]
  - LOSS OF CONSCIOUSNESS [None]
  - SUICIDE ATTEMPT [None]
